FAERS Safety Report 5307757-6 (Version None)
Quarter: 2007Q2

REPORT INFORMATION
  Report Type: 
  Country: None (occurrence: None)
  Receive Date: 20070418
  Receipt Date: 20070412
  Transmission Date: 20071010
  Serious: Yes (Hospitalization, Other)
  Sender: FDA-Public Use
  Company Number: 2007SP005109

PATIENT
  Age: 7 Year
  Sex: Male
  Weight: 28 kg

DRUGS (6)
  1. NOXAFIL [Suspect]
     Indication: BRONCHOPULMONARY ASPERGILLOSIS
     Dosage: SEE IMAGE
     Route: 048
     Dates: start: 20070311, end: 20070311
  2. NOXAFIL [Suspect]
     Indication: BRONCHOPULMONARY ASPERGILLOSIS
     Dosage: SEE IMAGE
     Route: 048
     Dates: start: 20070315, end: 20070316
  3. NOXAFIL [Suspect]
     Indication: BRONCHOPULMONARY ASPERGILLOSIS
     Dosage: SEE IMAGE
     Route: 048
     Dates: start: 20070317, end: 20070325
  4. NOXAFIL [Suspect]
     Indication: BRONCHOPULMONARY ASPERGILLOSIS
     Dosage: SEE IMAGE
     Route: 048
     Dates: start: 20070326
  5. MEROPENEM (CON) [Concomitant]
  6. VORICONAZOLE (PREV) [Concomitant]

REACTIONS (5)
  - ASPERGILLOSIS [None]
  - CONDITION AGGRAVATED [None]
  - DISEASE RECURRENCE [None]
  - PANCREATITIS [None]
  - PULMONARY MASS [None]
